FAERS Safety Report 24624063 (Version 1)
Quarter: 2024Q4

REPORT INFORMATION
  Report Type: Spontaneous
  Country: US (occurrence: None)
  Receive Date: 20241115
  Receipt Date: 20241115
  Transmission Date: 20250115
  Serious: No
  Sender: Public
  Company Number: None

PATIENT
  Age: 70 Year
  Sex: Male

DRUGS (1)
  1. MORPHINE [Suspect]
     Active Substance: MORPHINE
     Indication: Pain
     Dosage: 7.50 MG AS NEEDED ORAL
     Route: 048
     Dates: end: 20240524

REACTIONS (2)
  - Respiratory arrest [None]
  - Respiratory depression [None]

NARRATIVE: CASE EVENT DATE: 20240524
